FAERS Safety Report 5459520-3 (Version None)
Quarter: 2007Q3

REPORT INFORMATION
  Report Type: 
  Country: None (occurrence: None)
  Receive Date: 20070919
  Receipt Date: 20070912
  Transmission Date: 20080115
  Serious: Yes (Life-Threatening, Hospitalization)
  Sender: FDA-Public Use
  Company Number: B0487671A

PATIENT
  Age: 88 Year
  Sex: Female

DRUGS (9)
  1. AUGMENTIN '125' [Suspect]
     Indication: DIVERTICULITIS
     Dosage: 1.2MG UNKNOWN
     Route: 050
     Dates: start: 20070613, end: 20070617
  2. FENOFIBRATE [Suspect]
     Indication: DRUG USE FOR UNKNOWN INDICATION
     Dosage: 267MG UNKNOWN
     Route: 048
     Dates: end: 20070629
  3. CO-AMILOFRUSE [Concomitant]
     Dosage: 1U PER DAY
     Route: 048
     Dates: end: 20070626
  4. DIGOXIN [Concomitant]
     Dosage: 62.6MCG THREE TIMES PER DAY
     Route: 048
  5. LEVOTHYROXINE SODIUM [Concomitant]
     Dosage: 25MCG PER DAY
     Route: 048
  6. METRONIDAZOLE [Concomitant]
     Dosage: 500MG THREE TIMES PER DAY
     Route: 065
     Dates: start: 20070613, end: 20070625
  7. PAROXETINE [Concomitant]
     Dosage: 30MG PER DAY
     Route: 048
  8. TEMAZEPAM [Concomitant]
     Dosage: 10MG TWICE PER DAY
     Route: 048
  9. WARFARIN SODIUM [Concomitant]
     Route: 048

REACTIONS (3)
  - ABDOMINAL PAIN [None]
  - AGRANULOCYTOSIS [None]
  - SEPSIS [None]
